FAERS Safety Report 23286432 (Version 1)
Quarter: 2023Q4

REPORT INFORMATION
  Report Type: Spontaneous
  Country: DE (occurrence: DE)
  Receive Date: 20231212
  Receipt Date: 20231212
  Transmission Date: 20240109
  Serious: Yes (Other)
  Sender: FDA-Public Use
  Company Number: DE-002147023-NVSC2023DE258677

PATIENT

DRUGS (5)
  1. RUXOLITINIB [Suspect]
     Active Substance: RUXOLITINIB
     Indication: Still^s disease
     Dosage: 20 MG, QD
     Route: 048
  2. CANAKINUMAB [Suspect]
     Active Substance: CANAKINUMAB
     Indication: Still^s disease
     Dosage: 150 MG (EVERY 6 WEEKS)
     Route: 058
  3. CYCLOSPORINE [Suspect]
     Active Substance: CYCLOSPORINE
     Indication: Still^s disease
     Dosage: 80 MG, QD
     Route: 048
  4. METHOTREXATE [Concomitant]
     Active Substance: METHOTREXATE
     Indication: Still^s disease
     Dosage: 10 MG, QW
     Route: 058
  5. HUMAN IMMUNOGLOBULIN G [Concomitant]
     Active Substance: HUMAN IMMUNOGLOBULIN G
     Indication: Still^s disease
     Dosage: 15 MG (0.6 MG/KG EVERY 8 WEEKS)
     Route: 042

REACTIONS (11)
  - Off label use [Unknown]
  - Product use issue [Unknown]
  - Faecal calprotectin increased [Unknown]
  - Red blood cell sedimentation rate increased [Unknown]
  - Alanine aminotransferase increased [Unknown]
  - Aspartate aminotransferase increased [Unknown]
  - Chemokine increased [Unknown]
  - Interleukin level increased [Unknown]
  - Blood lactate dehydrogenase increased [Unknown]
  - Interstitial lung disease [Unknown]
  - Inflammation [Unknown]
